FAERS Safety Report 15058448 (Version 1)
Quarter: 2018Q2

REPORT INFORMATION
  Report Type: Spontaneous
  Country: FR (occurrence: FR)
  Receive Date: 20180625
  Receipt Date: 20180625
  Transmission Date: 20180711
  Serious: Yes (Other)
  Sender: FDA-Public Use
  Company Number: FR-CONCORDIA PHARMACEUTICALS INC.-E2B_00012859

PATIENT
  Age: 82 Year
  Sex: Female
  Weight: 81 kg

DRUGS (15)
  1. FENOFIBRATE. [Suspect]
     Active Substance: FENOFIBRATE
     Indication: CARDIOVASCULAR EVENT PROPHYLAXIS
     Route: 048
     Dates: end: 20180515
  2. HYDROCHLOROTHIAZIDE. [Concomitant]
     Active Substance: HYDROCHLOROTHIAZIDE
  3. PREDNISOLONE. [Suspect]
     Active Substance: PREDNISOLONE
     Indication: PAIN
     Route: 065
     Dates: start: 20180508, end: 20180508
  4. KARDEGIC [Concomitant]
     Active Substance: ASPIRIN DL-LYSINE
  5. SEREVENT DISKUS [Concomitant]
     Active Substance: SALMETEROL XINAFOATE
  6. TELMISARTAN. [Concomitant]
     Active Substance: TELMISARTAN
  7. OXYCONTIN [Suspect]
     Active Substance: OXYCODONE HYDROCHLORIDE
     Indication: PAIN
     Dosage: 10 MG 2/J JUSQU^AU 13/05 PUIS 20 MG 2/J
     Route: 048
     Dates: start: 20180511, end: 20180526
  8. PARACETAMOL [Suspect]
     Active Substance: ACETAMINOPHEN
     Indication: PAIN
     Route: 048
     Dates: start: 20180508, end: 20180511
  9. MOVICOL [Concomitant]
     Active Substance: POLYETHYLENE GLYCOL 3350\POTASSIUM CHLORIDE\SODIUM BICARBONATE\SODIUM CHLORIDE
  10. FLIXOTIDE [Concomitant]
     Active Substance: FLUTICASONE PROPIONATE
  11. ACTISKENAN 5 MG, GELULE [Suspect]
     Active Substance: MORPHINE SULFATE
     Indication: PAIN
     Route: 048
     Dates: start: 20180511, end: 20180511
  12. CHLORHYDRATE DE TRAMADOL [Suspect]
     Active Substance: TRAMADOL HYDROCHLORIDE
     Indication: PAIN
     Route: 048
     Dates: start: 20180508, end: 20180511
  13. LAROXYL 40 MG/ML, SOLUTION BUVABLE [Concomitant]
     Active Substance: AMITRIPTYLINE HYDROCHLORIDE
     Indication: PAIN
     Dates: start: 20180511
  14. LOVENOX [Concomitant]
     Active Substance: ENOXAPARIN SODIUM
     Indication: THROMBOSIS PROPHYLAXIS
     Dates: start: 20180512
  15. OXYNORM 5 MG, GELULE [Suspect]
     Active Substance: OXYCODONE HYDROCHLORIDE
     Indication: PAIN
     Route: 048
     Dates: start: 20180511, end: 20180526

REACTIONS (2)
  - Hepatocellular injury [Recovering/Resolving]
  - Cholestasis [Recovering/Resolving]

NARRATIVE: CASE EVENT DATE: 20180512
